FAERS Safety Report 9674745 (Version 3)
Quarter: 2014Q2

REPORT INFORMATION
  Report Type: Spontaneous
  Country: US (occurrence: US)
  Receive Date: 20131107
  Receipt Date: 20140617
  Transmission Date: 20141212
  Serious: Yes (Hospitalization)
  Sender: FDA-Public Use
  Company Number: US-BAYER-2013-134657

PATIENT
  Age: 21 Year
  Sex: Female
  Weight: 72.1 kg

DRUGS (5)
  1. OCELLA [Suspect]
     Indication: CONTRACEPTION
     Dosage: UNK
     Dates: start: 201109, end: 201112
  2. AMOXICILLIN [Concomitant]
     Dosage: 875 MG, UNK
  3. FLUCONAZOLE [Concomitant]
     Dosage: 150 MG, UNK
  4. MOTRIN [Concomitant]
     Indication: MIGRAINE
  5. HEPARIN SODIUM [Concomitant]

REACTIONS (5)
  - Transient ischaemic attack [None]
  - Cerebrovascular accident [Recovered/Resolved]
  - Cerebral infarction [None]
  - Injury [None]
  - Pain [None]
